FAERS Safety Report 6639199-5 (Version None)
Quarter: 2010Q1

REPORT INFORMATION
  Report Type: 
  Country: None (occurrence: None)
  Receive Date: 20100312
  Receipt Date: 20100301
  Transmission Date: 20100710
  Serious: Yes (Other)
  Sender: FDA-Public Use
  Company Number: B0638397A

PATIENT
  Age: 43 Year
  Sex: Female

DRUGS (1)
  1. METRONIDAZOLE [Suspect]
     Indication: TOOTHACHE

REACTIONS (9)
  - DRUG HYPERSENSITIVITY [None]
  - DRUG TOXICITY [None]
  - EXTRAVASATION BLOOD [None]
  - MUCOSAL NECROSIS [None]
  - MUCOSAL ULCERATION [None]
  - OEDEMA MOUTH [None]
  - ORAL DISCOMFORT [None]
  - PAIN [None]
  - PALATAL DISORDER [None]
